FAERS Safety Report 14909834 (Version 1)
Quarter: 2018Q2

REPORT INFORMATION
  Report Type: Spontaneous
  Country: BR (occurrence: BR)
  Receive Date: 20180517
  Receipt Date: 20180517
  Transmission Date: 20180711
  Serious: Yes (Other)
  Sender: FDA-Public Use
  Company Number: BR-PFIZER INC-2018186232

PATIENT
  Age: 56 Year
  Sex: Female

DRUGS (1)
  1. XELJANZ [Suspect]
     Active Substance: TOFACITINIB CITRATE
     Dosage: 5 MG, 2X/DAY

REACTIONS (5)
  - Infected skin ulcer [Recovering/Resolving]
  - Neuralgia [Recovering/Resolving]
  - Dermatitis herpetiformis [Recovering/Resolving]
  - Rheumatoid vasculitis [Recovering/Resolving]
  - Herpes simplex [Recovering/Resolving]
